FAERS Safety Report 17670439 (Version 1)
Quarter: 2020Q2

REPORT INFORMATION
  Report Type: Spontaneous
  Country: DE (occurrence: DE)
  Receive Date: 20200415
  Receipt Date: 20200415
  Transmission Date: 20200713
  Serious: Yes (Other)
  Sender: FDA-Public Use
  Company Number: DE-ACCORD-178609

PATIENT
  Age: 48 Year
  Sex: Female

DRUGS (5)
  1. ELIQUIS [Suspect]
     Active Substance: APIXABAN
     Indication: HYPERCOAGULATION
     Dosage: 5 MILLIGRAM, BID
     Route: 048
  2. TECFIDERA [Concomitant]
     Active Substance: DIMETHYL FUMARATE
     Dosage: UNK
     Route: 065
  3. SATIVEX [Concomitant]
     Active Substance: NABIXIMOLS
     Dosage: UNK
     Route: 065
  4. DEKRISTOL [Concomitant]
     Active Substance: CHOLECALCIFEROL
     Dosage: UNK
     Route: 065
  5. ESCITALOPRAM [Suspect]
     Active Substance: ESCITALOPRAM OXALATE
     Indication: PRODUCT USED FOR UNKNOWN INDICATION
     Route: 065

REACTIONS (3)
  - Multiple sclerosis relapse [Unknown]
  - Vitamin D decreased [Unknown]
  - Oropharyngeal pain [Unknown]
